FAERS Safety Report 14646124 (Version 1)
Quarter: 2018Q1

REPORT INFORMATION
  Report Type: Spontaneous
  Country: AU (occurrence: AU)
  Receive Date: 20180316
  Receipt Date: 20180316
  Transmission Date: 20180509
  Serious: Yes (Hospitalization)
  Sender: FDA-Public Use
  Company Number: AU-ROCHE-2084289

PATIENT
  Sex: Female

DRUGS (1)
  1. AVASTIN [Suspect]
     Active Substance: BEVACIZUMAB
     Indication: MESOTHELIOMA
     Route: 065

REACTIONS (5)
  - Retinal haemorrhage [Unknown]
  - Intentional product use issue [Unknown]
  - Visual impairment [Unknown]
  - Hypertensive crisis [Unknown]
  - Off label use [Unknown]
